FAERS Safety Report 15879778 (Version 1)
Quarter: 2019Q1

REPORT INFORMATION
  Report Type: Spontaneous
  Country: US (occurrence: US)
  Receive Date: 20190128
  Receipt Date: 20190128
  Transmission Date: 20190417
  Serious: No
  Sender: FDA-Public Use
  Company Number: US-009507513-1901USA009823

PATIENT
  Age: 3 Year

DRUGS (1)
  1. NOXAFIL [Suspect]
     Active Substance: POSACONAZOLE
     Dosage: 4.5 MILLIGRAM/KILOGRAM, PER DOSE FOR 2 DOSES PER DAY
     Route: 042
     Dates: start: 20190123

REACTIONS (2)
  - No adverse event [Unknown]
  - Product administered to patient of inappropriate age [Unknown]
